FAERS Safety Report 7980087-X (Version None)
Quarter: 2011Q4

REPORT INFORMATION
  Report Type: 
  Country: None (occurrence: None)
  Receive Date: 20111212
  Receipt Date: 20111202
  Transmission Date: 20120403
  Serious: No
  Sender: FDA-Public Use
  Company Number: 2011-01323

PATIENT
  Age: 81 Year
  Sex: Female
  Weight: 56.6996 kg

DRUGS (4)
  1. ZICAM COLD REMEDY ORAL MIST [Suspect]
     Indication: NASOPHARYNGITIS
     Dosage: 4 SPRAYS ORALLY 6 TIMES DAILY
     Route: 048
     Dates: start: 20111128, end: 20111201
  2. METOPROLOL TARTRATE [Concomitant]
  3. ZOCOR [Concomitant]
  4. AMLODIPINE [Concomitant]

REACTIONS (1)
  - AGEUSIA [None]
